FAERS Safety Report 6404586-7 (Version None)
Quarter: 2009Q4

REPORT INFORMATION
  Report Type: 
  Country: None (occurrence: None)
  Receive Date: 20091016
  Receipt Date: 20091008
  Transmission Date: 20100525
  Serious: Yes (Death)
  Sender: FDA-Public Use
  Company Number: ES-TEVA-210053ISR

PATIENT
  Sex: Male

DRUGS (6)
  1. OXALIPLATIN [Suspect]
     Indication: COLORECTAL CANCER METASTATIC
     Route: 042
     Dates: start: 20090518, end: 20090902
  2. FOLINIC ACID [Suspect]
     Indication: COLORECTAL CANCER METASTATIC
     Route: 042
     Dates: start: 20090518, end: 20090902
  3. IMC-11121B ANTI-VEGFR2 MAB [Suspect]
     Indication: COLORECTAL CANCER METASTATIC
     Route: 042
     Dates: start: 20090518, end: 20090902
  4. FLUOROURACIL [Suspect]
     Indication: COLORECTAL CANCER METASTATIC
     Route: 042
     Dates: start: 20090518, end: 20090902
  5. ATENOLOL [Concomitant]
     Dates: start: 20090604
  6. OMEPRAZOLE [Concomitant]
     Dates: start: 20090529

REACTIONS (1)
  - ACUTE MYOCARDIAL INFARCTION [None]
